FAERS Safety Report 10228258 (Version 3)
Quarter: 2014Q3

REPORT INFORMATION
  Report Type: Spontaneous
  Country: US (occurrence: US)
  Receive Date: 20140610
  Receipt Date: 20140903
  Transmission Date: 20150326
  Serious: Yes (Hospitalization)
  Sender: FDA-Public Use
  Company Number: US-BAYER-2014-083299

PATIENT
  Age: 43 Year
  Sex: Female

DRUGS (13)
  1. OCELLA [Suspect]
     Active Substance: DROSPIRENONE\ETHINYL ESTRADIOL
     Dosage: UNK
     Dates: start: 200801, end: 200803
  2. TIZANIDINE [Concomitant]
     Active Substance: TIZANIDINE
     Dosage: 4 MG, DAILY
  3. COLACE [Concomitant]
     Active Substance: DOCUSATE SODIUM
     Dosage: 100 MG, BID
  4. CHOLEST-OFF [Concomitant]
     Dosage: 900 MG, DAILY
  5. FAMOTIDINE. [Concomitant]
     Active Substance: FAMOTIDINE
     Dosage: 20 MG,DAILY
  6. VICODIN [Concomitant]
     Active Substance: ACETAMINOPHEN\HYDROCODONE BITARTRATE
     Dosage: ONE TABLET AS EVERY 8 HRS PRN
  7. CITRACAL [Concomitant]
     Active Substance: CALCIUM CITRATE
     Dosage: DAILY
  8. GABAPENTIN. [Concomitant]
     Active Substance: GABAPENTIN
     Dosage: 300 MG, TID
  9. AMOXICILLIN. [Concomitant]
     Active Substance: AMOXICILLIN
     Dosage: UNK
     Dates: start: 1992
  10. DOXYCYCLINE. [Concomitant]
     Active Substance: DOXYCYCLINE
     Dosage: 100 MG, BID
  11. SCHIFF MOVE FREE [Concomitant]
     Active Substance: CHONDROITIN SULFATE A\GLUCOSAMINE
     Dosage: DAILY
  12. DEHYDROEPIANDROSTERONE [Concomitant]
     Dosage: 25 MG, DAILY
  13. ZOLOFT [Concomitant]
     Active Substance: SERTRALINE HYDROCHLORIDE
     Dosage: 100 MG, TWO DAILY

REACTIONS (11)
  - General physical health deterioration [Recovered/Resolved]
  - Depression [None]
  - Insomnia [None]
  - Chest pain [Recovered/Resolved]
  - Anxiety [None]
  - Pulmonary embolism [Recovered/Resolved]
  - Injury [Recovered/Resolved]
  - Dyspnoea [Recovered/Resolved]
  - Pain [None]
  - Emotional distress [None]
  - Headache [None]

NARRATIVE: CASE EVENT DATE: 20080304
